FAERS Safety Report 8925756 (Version 2)
Quarter: 2012Q4

REPORT INFORMATION
  Report Type: 
  Country: GB (occurrence: GB)
  Receive Date: 20121126
  Receipt Date: 20121211
  Transmission Date: 20130627
  Serious: Yes (Other)
  Sender: FDA-Public Use
  Company Number: PHFR2012GB006031

PATIENT
  Sex: Female

DRUGS (2)
  1. NEORAL [Suspect]
     Indication: STEM CELL TRANSPLANT
     Dosage: 100 mg, BID
  2. NEORAL [Suspect]
     Dosage: 85 mg, BID

REACTIONS (4)
  - Hallucination [Unknown]
  - Hallucination, auditory [Unknown]
  - Restlessness [Unknown]
  - Drug level increased [Unknown]
